FAERS Safety Report 9390858 (Version 3)
Quarter: 2013Q3

REPORT INFORMATION
  Report Type: Report from Study
  Country: IT (occurrence: IT)
  Receive Date: 20130709
  Receipt Date: 20130805
  Transmission Date: 20140515
  Serious: Yes (Death, Hospitalization)
  Sender: FDA-Public Use
  Company Number: PHHO2013IT008939

PATIENT
  Sex: 0

DRUGS (6)
  1. AFINITOR [Suspect]
     Indication: BREAST CANCER METASTATIC
     Dosage: 10 MG, QD
     Route: 048
     Dates: start: 20130107, end: 20130622
  2. EXEMESTANE [Suspect]
     Indication: BREAST CANCER METASTATIC
     Dosage: 25 MG, QD
     Route: 048
     Dates: start: 20130107, end: 20130622
  3. METFORMINA [Concomitant]
     Indication: DIABETES MELLITUS
     Dosage: 1000 MG, UNK
     Dates: start: 200611
  4. SOLOSA [Concomitant]
     Indication: DIABETES MELLITUS
     Dosage: 4 MG, UNK
     Dates: start: 20111223
  5. DIBASE [Concomitant]
     Indication: OSTEOPOROSIS PROPHYLAXIS
     Dosage: 100 IU, UNK
     Dates: start: 20111212
  6. CO-EFFERALGAN [Concomitant]
     Indication: PAIN
     Dosage: 500/30 MG
     Dates: start: 201305

REACTIONS (1)
  - Hepatic failure [Fatal]
